FAERS Safety Report 5176918-1 (Version None)
Quarter: 2006Q4

REPORT INFORMATION
  Report Type: 
  Country: None (occurrence: None)
  Receive Date: 20061218
  Receipt Date: 20061207
  Transmission Date: 20070319
  Serious: Yes (Other)
  Sender: FDA-Public Use
  Company Number: PHBS2006GR19285

PATIENT

DRUGS (1)
  1. CIBADREX [Suspect]
     Dates: start: 20060301

REACTIONS (4)
  - DIZZINESS [None]
  - EXPIRED DRUG ADMINISTERED [None]
  - HALLUCINATION [None]
  - POOR QUALITY DRUG ADMINISTERED [None]
